FAERS Safety Report 8284260-5 (Version None)
Quarter: 2012Q2

REPORT INFORMATION
  Report Type: 
  Country: None (occurrence: None)
  Receive Date: 20120413
  Receipt Date: 20120127
  Transmission Date: 20120825
  Serious: No
  Sender: FDA-Public Use
  Company Number: US-ASTRAZENECA-2011SE48206

PATIENT
  Age: 27 Year
  Sex: Female

DRUGS (3)
  1. NEXIUM [Suspect]
     Route: 048
  2. PRILOSEC OTC [Suspect]
     Route: 048
  3. ZANTAC [Concomitant]

REACTIONS (11)
  - NEPHROLITHIASIS [None]
  - URINE ODOUR ABNORMAL [None]
  - NAUSEA [None]
  - GASTROOESOPHAGEAL REFLUX DISEASE [None]
  - BACK PAIN [None]
  - MATERNAL EXPOSURE DURING PREGNANCY [None]
  - VOMITING [None]
  - DRUG DOSE OMISSION [None]
  - DRUG INEFFECTIVE [None]
  - HELICOBACTER INFECTION [None]
  - HEPATIC STEATOSIS [None]
